FAERS Safety Report 5168815-2 (Version None)
Quarter: 2006Q4

REPORT INFORMATION
  Report Type: 
  Country: None (occurrence: None)
  Receive Date: 20061211
  Receipt Date: 20061204
  Transmission Date: 20070319
  Serious: Yes (Other)
  Sender: FDA-Public Use
  Company Number: US-JNJFOC-20051104339

PATIENT
  Sex: Female
  Weight: 70.76 kg

DRUGS (4)
  1. RISPERDAL [Suspect]
     Dosage: AT BEDTIME
  2. RISPERDAL [Suspect]
  3. RISPERDAL [Suspect]
     Indication: POST-TRAUMATIC STRESS DISORDER
  4. EFFEXOR [Concomitant]

REACTIONS (2)
  - DIABETES MELLITUS NON-INSULIN-DEPENDENT [None]
  - IRON DEFICIENCY ANAEMIA [None]
